FAERS Safety Report 17485181 (Version 1)
Quarter: 2020Q1

REPORT INFORMATION
  Report Type: Spontaneous
  Country: BR (occurrence: BR)
  Receive Date: 20200302
  Receipt Date: 20200302
  Transmission Date: 20200409
  Serious: Yes (Hospitalization, Other)
  Sender: FDA-Public Use
  Company Number: BR-PURDUE-GBR-2020-0075346

PATIENT
  Sex: Female

DRUGS (1)
  1. RESTIVA [Suspect]
     Active Substance: BUPRENORPHINE
     Indication: SPINAL OSTEOARTHRITIS
     Dosage: 1 PATCH, WEEKLY (EACH 7 DAYS) (STRENGTH 5MG)
     Route: 062
     Dates: start: 20200129, end: 20200206

REACTIONS (9)
  - Abdominal pain upper [Unknown]
  - Vomiting [Unknown]
  - Feeling abnormal [Unknown]
  - Syncope [Unknown]
  - Vision blurred [Unknown]
  - Dizziness [Unknown]
  - Toxicity to various agents [Unknown]
  - Nausea [Unknown]
  - Muscular weakness [Unknown]

NARRATIVE: CASE EVENT DATE: 20200129
